FAERS Safety Report 7529751-7 (Version None)
Quarter: 2011Q2

REPORT INFORMATION
  Report Type: 
  Country: None (occurrence: None)
  Receive Date: 20110531
  Receipt Date: 20110531
  Transmission Date: 20111010
  Serious: Yes (Hospitalization)
  Sender: FDA-Public Use
  Company Number: None

PATIENT
  Age: 8 Year
  Sex: Female
  Weight: 36.4 kg

DRUGS (12)
  1. ATIVAN [Concomitant]
  2. URSODIOL [Concomitant]
  3. CIDOFOVIR [Suspect]
     Indication: ADENOVIRUS INFECTION
     Dosage: 170MG, BIW, PO
     Route: 048
     Dates: start: 20110513
  4. CIDOFOVIR [Suspect]
     Indication: ADENOVIRUS INFECTION
     Dosage: 170MG, BIW, PO
     Route: 048
     Dates: start: 20110503
  5. CEFTRIAXONE [Concomitant]
  6. AMBISOME [Concomitant]
  7. PREVACID [Concomitant]
  8. PROZAC [Concomitant]
  9. TACROLIMUS [Concomitant]
  10. PANTOPRAZOLE [Concomitant]
  11. SCOPOLAMINE [Concomitant]
  12. HYDROXYZINE [Concomitant]

REACTIONS (1)
  - PANCREATITIS [None]
